FAERS Safety Report 19232355 (Version 2)
Quarter: 2024Q2

REPORT INFORMATION
  Report Type: Spontaneous
  Country: PT (occurrence: PT)
  Receive Date: 20210507
  Receipt Date: 20240624
  Transmission Date: 20240716
  Serious: Yes (Hospitalization)
  Sender: FDA-Public Use
  Company Number: PT-MYLANLABS-2021M1027055

PATIENT
  Age: 41 Year
  Sex: Female

DRUGS (7)
  1. TENOFOVIR DISOPROXIL [Suspect]
     Active Substance: TENOFOVIR DISOPROXIL
     Indication: HIV infection
     Dosage: 245 MILLIGRAM, QD
     Route: 065
  2. EMTRICITABINE [Suspect]
     Active Substance: EMTRICITABINE
     Indication: HIV infection
     Dosage: 200 MILLIGRAM, QD
     Route: 065
  3. DOLUTEGRAVIR [Suspect]
     Active Substance: DOLUTEGRAVIR
     Indication: HIV infection
     Dosage: 50 MILLIGRAM, QD
     Route: 065
  4. SALINE [Suspect]
     Active Substance: SODIUM CHLORIDE
     Indication: Fluid replacement
     Dosage: HYPOTONIC SALINE SOLUTION
     Route: 065
  5. DESMOPRESSIN [Suspect]
     Active Substance: DESMOPRESSIN
     Indication: Diabetes insipidus
     Dosage: 0.06 MILLIGRAM, QD
     Route: 048
  6. DESMOPRESSIN [Suspect]
     Active Substance: DESMOPRESSIN
     Indication: Gestational diabetes
     Dosage: 0.06 MILLIGRAM, BID
     Route: 048
  7. DESMOPRESSIN [Suspect]
     Active Substance: DESMOPRESSIN
     Indication: Hypernatraemia

REACTIONS (6)
  - Gestational diabetes [Recovered/Resolved]
  - Diabetes insipidus [Recovered/Resolved]
  - Nephrogenic diabetes insipidus [Recovered/Resolved]
  - Renal impairment [Recovered/Resolved]
  - Oligohydramnios [Recovered/Resolved]
  - Maternal exposure during pregnancy [Recovered/Resolved]
